FAERS Safety Report 9416450 (Version 1)
Quarter: 2013Q3

REPORT INFORMATION
  Report Type: Spontaneous
  Country: JP (occurrence: None)
  Receive Date: 20130718
  Receipt Date: 20130718
  Transmission Date: 20140515
  Serious: Yes (Hospitalization)
  Sender: FDA-Public Use
  Company Number: IMP_06743_2013

PATIENT
  Age: 75 Year
  Sex: Female

DRUGS (3)
  1. MINOCYCLINE [Suspect]
     Indication: RHEUMATOID ARTHRITIS
  2. PREDNISOLONE [Concomitant]
  3. SULFASALAZINE [Concomitant]

REACTIONS (1)
  - Myopathy [None]
